FAERS Safety Report 7484925-9 (Version None)
Quarter: 2011Q2

REPORT INFORMATION
  Report Type: 
  Country: None (occurrence: None)
  Receive Date: 20110517
  Receipt Date: 20110511
  Transmission Date: 20111010
  Serious: Yes (Other)
  Sender: FDA-Public Use
  Company Number: B0718892A

PATIENT
  Age: 62 Year
  Sex: Male

DRUGS (4)
  1. REQUIP [Suspect]
     Indication: PARKINSON'S DISEASE
     Dosage: 4MG THREE TIMES PER DAY
     Route: 048
  2. APOMORPHINE [Concomitant]
  3. RASAGILINE MESYLATE [Concomitant]
  4. CO-CARELDOPA [Concomitant]

REACTIONS (3)
  - HALLUCINATION [None]
  - OEDEMA PERIPHERAL [None]
  - DISTURBANCE IN SOCIAL BEHAVIOUR [None]
